FAERS Safety Report 8443748 (Version 9)
Quarter: 2013Q4

REPORT INFORMATION
  Report Type: Report from Study
  Country: DE (occurrence: DE)
  Receive Date: 20120306
  Receipt Date: 20131106
  Transmission Date: 20140711
  Serious: Yes (Hospitalization)
  Sender: FDA-Public Use
  Company Number: PHHO2012DE002935

PATIENT
  Sex: 0

DRUGS (5)
  1. AMN107 [Suspect]
     Indication: CHRONIC MYELOID LEUKAEMIA
     Dosage: 300 MG, BID
     Route: 048
     Dates: start: 20111228, end: 20120928
  2. ASS [Concomitant]
     Indication: CORONARY ARTERY DISEASE
     Dosage: 100 MG, QD
     Route: 065
  3. SIMVASTATIN [Concomitant]
     Indication: HYPERLIPIDAEMIA
     Dosage: 20 MG, DAILY
     Route: 065
  4. BENSERAZIDE HYDROCHLORIDE W/LEVODOPA [Concomitant]
     Indication: RESTLESS LEGS SYNDROME
     Dosage: 1 DF, QD (25 MG/10 MG)
     Dates: end: 20120215
  5. CITALOPRAM [Concomitant]

REACTIONS (3)
  - Dyspnoea exertional [Not Recovered/Not Resolved]
  - Chest pain [Recovered/Resolved]
  - Acute myocardial infarction [Not Recovered/Not Resolved]
